FAERS Safety Report 7442265-8 (Version None)
Quarter: 2011Q2

REPORT INFORMATION
  Report Type: 
  Country: None (occurrence: None)
  Receive Date: 20110425
  Receipt Date: 20110425
  Transmission Date: 20111010
  Serious: No
  Sender: FDA-Public Use
  Company Number: None

PATIENT
  Age: 9 Year
  Sex: Male
  Weight: 32.2054 kg

DRUGS (1)
  1. SINGULAIR [Suspect]
     Indication: ASTHMA
     Dosage: ASMANEX 5MG-CHEWABLE DAILY ORAL
     Route: 048
     Dates: start: 20090701, end: 20110401

REACTIONS (2)
  - PALPITATIONS [None]
  - ANGINA PECTORIS [None]
